FAERS Safety Report 4284598-2 (Version None)
Quarter: 2004Q1

REPORT INFORMATION
  Report Type: 
  Country: None (occurrence: None)
  Receive Date: 20040130
  Receipt Date: 20040120
  Transmission Date: 20041129
  Serious: Yes (Hospitalization, Other)
  Sender: FDA-Public Use
  Company Number: 2004003999

PATIENT
  Age: 21 Year
  Sex: Male

DRUGS (3)
  1. ZOLOFT [Suspect]
     Indication: ANXIETY
     Dosage: 100 MG (DAILY), ORAL
     Route: 048
     Dates: start: 20030101
  2. ZOLOFT [Suspect]
     Indication: DEPRESSION
     Dosage: 100 MG (DAILY), ORAL
     Route: 048
     Dates: start: 20030101
  3. ZOLOFT [Suspect]
     Indication: EATING DISORDER
     Dosage: 100 MG (DAILY), ORAL
     Route: 048
     Dates: start: 20030101

REACTIONS (1)
  - OVERDOSE [None]
